FAERS Safety Report 17771230 (Version 5)
Quarter: 2020Q2

REPORT INFORMATION
  Report Type: Report from Study
  Country: US (occurrence: US)
  Receive Date: 20200512
  Receipt Date: 20200622
  Transmission Date: 20200714
  Serious: Yes (Hospitalization)
  Sender: FDA-Public Use
  Company Number: US-PFIZER INC-2020187129

PATIENT
  Age: 5 Year
  Sex: Male
  Weight: 18.9 kg

DRUGS (9)
  1. ONDANSETRON [Concomitant]
     Active Substance: ONDANSETRON
     Indication: NAUSEA
     Dosage: 2.5 ML, AS NEEDED
     Route: 048
     Dates: start: 20200211
  2. CHOLECALCIFEROL [Concomitant]
     Active Substance: CHOLECALCIFEROL
     Indication: VITAMIN D DEFICIENCY
     Dosage: 1 ML, ONCE DAILY
     Route: 048
     Dates: start: 20200211
  3. PF-06463922 [Suspect]
     Active Substance: LORLATINIB
     Indication: NEUROBLASTOMA
     Dosage: 70 MG, DAILY, G-TUBE
     Route: 048
     Dates: start: 20200211
  4. TOPOTECAN HYDROCHLORIDE. [Suspect]
     Active Substance: TOPOTECAN HYDROCHLORIDE
     Indication: NEUROBLASTOMA
     Dosage: 0.444 MG, DAYS 1-5 OF EACH 28 DAY CYCLE
     Route: 042
     Dates: start: 20200211
  5. CYCLOPHOSPHAMIDE. [Suspect]
     Active Substance: CYCLOPHOSPHAMIDE
     Indication: NEUROBLASTOMA
     Dosage: 148 MG, DAYS 1-5 OF EACH 28 DAY CYCLE
     Route: 042
     Dates: start: 20200211
  6. METHADONE [Concomitant]
     Active Substance: METHADONE HYDROCHLORIDE
     Indication: PAIN
     Dosage: 1.5 MG, TWICE DAILY
     Route: 048
     Dates: start: 20200206
  7. SENNA [Concomitant]
     Active Substance: SENNA LEAF\SENNOSIDES\SENNOSIDES A AND B
     Indication: CONSTIPATION
     Dosage: 8.8 MG/5ML, AS NEEDED
     Route: 048
     Dates: start: 20200211
  8. OXYCODONE [Concomitant]
     Active Substance: OXYCODONE
     Indication: PAIN
     Dosage: 1.8 MG, Q 4 HOURS
     Route: 048
     Dates: start: 20200309
  9. CALCIUM CARBONATE. [Concomitant]
     Active Substance: CALCIUM CARBONATE
     Indication: ABDOMINAL DISCOMFORT
     Dosage: 1250 MG/5ML, VIA G-TUBE
     Dates: start: 20200211

REACTIONS (1)
  - Cellulitis [Recovering/Resolving]

NARRATIVE: CASE EVENT DATE: 20200514
